FAERS Safety Report 9869595 (Version 1)
Quarter: 2014Q1

REPORT INFORMATION
  Report Type: Spontaneous
  Country: BR (occurrence: None)
  Receive Date: 20140203
  Receipt Date: 20140203
  Transmission Date: 20141002
  Serious: Yes (Other)
  Sender: FDA-Public Use
  Company Number: 7262963

PATIENT
  Age: 43 Year
  Sex: Female

DRUGS (2)
  1. REBIF [Suspect]
     Indication: MULTIPLE SCLEROSIS
     Dates: start: 20110809
  2. TRAVATAN (TRAVOPROST) [Concomitant]

REACTIONS (4)
  - Labyrinthitis [None]
  - Multiple sclerosis relapse [None]
  - Gait disturbance [None]
  - Abasia [None]
